FAERS Safety Report 13449412 (Version 2)
Quarter: 2017Q2

REPORT INFORMATION
  Report Type: Spontaneous
  Country: US (occurrence: US)
  Receive Date: 20170417
  Receipt Date: 20170508
  Transmission Date: 20170830
  Serious: Yes (Other)
  Sender: FDA-Public Use
  Company Number: US-BAYER-2017-072913

PATIENT
  Sex: Female

DRUGS (1)
  1. CIPRO [Suspect]
     Active Substance: CIPROFLOXACIN HYDROCHLORIDE
     Dosage: UNK
     Dates: start: 200903

REACTIONS (4)
  - Visual impairment [None]
  - Blindness unilateral [None]
  - Visual field defect [None]
  - Visual impairment [None]

NARRATIVE: CASE EVENT DATE: 200906
